FAERS Safety Report 22227769 (Version 2)
Quarter: 2023Q2

REPORT INFORMATION
  Report Type: Spontaneous
  Country: US (occurrence: US)
  Receive Date: 20230419
  Receipt Date: 20230531
  Transmission Date: 20230721
  Serious: No
  Sender: FDA-Public Use
  Company Number: US-PFIZER INC-202300152895

PATIENT
  Age: 14 Year
  Sex: Male
  Weight: 44.91 kg

DRUGS (3)
  1. SOMATROPIN [Suspect]
     Active Substance: SOMATROPIN
     Indication: Growth hormone deficiency
     Dosage: 1.2 MG, 1X/DAY, AT NIGHT
     Dates: start: 202303
  2. INTUNIV [Concomitant]
     Active Substance: GUANFACINE HYDROCHLORIDE
     Indication: Hypersensitivity
     Dosage: 20 MG, 1X/DAY
  3. VYVANSE [Concomitant]
     Active Substance: LISDEXAMFETAMINE DIMESYLATE
     Indication: Hypersensitivity
     Dosage: 3 MG, 1X/DAY

REACTIONS (3)
  - Insomnia [Unknown]
  - Device leakage [Unknown]
  - Poor quality device used [Unknown]
